FAERS Safety Report 16541972 (Version 1)
Quarter: 2019Q3

REPORT INFORMATION
  Report Type: Spontaneous
  Country: AT (occurrence: AT)
  Receive Date: 20190708
  Receipt Date: 20190708
  Transmission Date: 20191004
  Serious: Yes (Other)
  Sender: FDA-Public Use
  Company Number: AT-ELI_LILLY_AND_COMPANY-AT201907000337

PATIENT
  Sex: Female

DRUGS (2)
  1. CARBOPLATIN. [Suspect]
     Active Substance: CARBOPLATIN
     Indication: SQUAMOUS CELL CARCINOMA OF LUNG
     Dosage: UNK, UNKNOWN
     Route: 065
     Dates: start: 201901
  2. GEMCITABINE HYDROCHLORIDE. [Suspect]
     Active Substance: GEMCITABINE HYDROCHLORIDE
     Indication: SQUAMOUS CELL CARCINOMA OF LUNG
     Dosage: UNK, UNKNOWN
     Route: 065
     Dates: start: 201901

REACTIONS (3)
  - Malignant neoplasm progression [Unknown]
  - Off label use [Unknown]
  - Chronic obstructive pulmonary disease [Unknown]
